FAERS Safety Report 11156014 (Version 4)
Quarter: 2015Q3

REPORT INFORMATION
  Report Type: Spontaneous
  Country: IT (occurrence: IT)
  Receive Date: 20150602
  Receipt Date: 20150702
  Transmission Date: 20151125
  Serious: Yes (Death)
  Sender: FDA-Public Use
  Company Number: IT-ROCHE-1584326

PATIENT
  Age: 46 Year
  Sex: Female

DRUGS (5)
  1. TAXCEUS [Suspect]
     Active Substance: DOCETAXEL
     Indication: BREAST CANCER METASTATIC
     Route: 042
  2. TAXCEUS [Suspect]
     Active Substance: DOCETAXEL
     Route: 042
     Dates: start: 20150115, end: 20150515
  3. HERCEPTIN [Suspect]
     Active Substance: TRASTUZUMAB
     Indication: BREAST CANCER METASTATIC
     Route: 065
     Dates: start: 20150115, end: 20150515
  4. ZOMETA [Concomitant]
     Active Substance: ZOLEDRONIC ACID
  5. PERJETA [Suspect]
     Active Substance: PERTUZUMAB
     Indication: HER-2 POSITIVE BREAST CANCER
     Dosage: 420 MG (GLASS) BOTTLE -1 BOTTLE (30MG/ML)
     Route: 042
     Dates: start: 20150115, end: 20150515

REACTIONS (2)
  - Chest pain [Fatal]
  - Dyspnoea [Fatal]

NARRATIVE: CASE EVENT DATE: 20150521
